FAERS Safety Report 14898486 (Version 2)
Quarter: 2018Q4

REPORT INFORMATION
  Report Type: Report from Study
  Country: CA (occurrence: CA)
  Receive Date: 20180515
  Receipt Date: 20181227
  Transmission Date: 20190204
  Serious: Yes (Other)
  Sender: FDA-Public Use
  Company Number: PHHY2018CA005885

PATIENT
  Age: 94 Year
  Sex: Female

DRUGS (5)
  1. ENTRESTO [Suspect]
     Active Substance: SACUBITRIL\VALSARTAN
     Dosage: 2 DF (24 MG SACUBITRIL AND 26 MG VALSARTAN), UNK
     Route: 065
     Dates: start: 20180616
  2. ENTRESTO [Suspect]
     Active Substance: SACUBITRIL\VALSARTAN
     Dosage: 2 DF (49 MG SACUBITRIL AND 51 MG VALSARTAN), UNK
     Route: 065
     Dates: start: 20161125, end: 20170625
  3. ENTRESTO [Suspect]
     Active Substance: SACUBITRIL\VALSARTAN
     Dosage: 2 DF (97 MG SACUBITRIL AND 103 MG VALSARTAN), UNK
     Route: 065
     Dates: start: 20170626, end: 20180601
  4. ENTRESTO [Suspect]
     Active Substance: SACUBITRIL\VALSARTAN
     Indication: CARDIAC FAILURE
     Dosage: 2 DF (24 MG SACUBITRIL AND 26 MG VALSARTAN), UNK
     Route: 065
     Dates: start: 20161110, end: 20161124
  5. ENTRESTO [Suspect]
     Active Substance: SACUBITRIL\VALSARTAN
     Dosage: 2 DF (49 MG SACUBITRIL AND 51 MG VALSARTAN), UNK
     Route: 065
     Dates: start: 20180602, end: 20180615

REACTIONS (8)
  - Hypervolaemia [Recovered/Resolved]
  - Anaemia [Recovered/Resolved]
  - Speech disorder [Recovered/Resolved]
  - Hypervolaemia [Recovered/Resolved]
  - Hypovolaemia [Recovered/Resolved]
  - Acute kidney injury [Recovered/Resolved]
  - Hypotension [Not Recovered/Not Resolved]
  - Acute kidney injury [Recovered/Resolved]

NARRATIVE: CASE EVENT DATE: 20171026
